FAERS Safety Report 4391714-0 (Version None)
Quarter: 2004Q3

REPORT INFORMATION
  Report Type: 
  Country: None (occurrence: None)
  Receive Date: 20040701
  Receipt Date: 20040617
  Transmission Date: 20050211
  Serious: Yes (Hospitalization)
  Sender: FDA-Public Use
  Company Number: 198757

PATIENT
  Age: 49 Year
  Sex: Female

DRUGS (5)
  1. AVONEX [Suspect]
     Indication: MULTIPLE SCLEROSIS
     Dosage: 30 MCG QW IM
     Route: 030
     Dates: start: 20030818
  2. NEURONTIN [Concomitant]
  3. TRILEPTAL [Concomitant]
  4. BACLOFEN [Concomitant]
  5. CLONAZEPAM [Concomitant]

REACTIONS (3)
  - EATING DISORDER [None]
  - PAIN [None]
  - SPEECH DISORDER [None]
